FAERS Safety Report 18059286 (Version 3)
Quarter: 2020Q4

REPORT INFORMATION
  Report Type: Report from Study
  Country: US (occurrence: US)
  Receive Date: 20200723
  Receipt Date: 20201021
  Transmission Date: 20210113
  Serious: Yes (Other)
  Sender: FDA-Public Use
  Company Number: US-BEIGENE AUS PTY LTD-BEIGENE-2018-000566

PATIENT

DRUGS (11)
  1. BGB-3111 [Suspect]
     Active Substance: ZANUBRUTINIB
     Dosage: UNK
  2. LIPITOR [Concomitant]
     Active Substance: ATORVASTATIN CALCIUM
     Indication: PRODUCT USED FOR UNKNOWN INDICATION
     Dosage: 20 MILLIGRAM, QD
     Route: 048
  3. LAMISIL [Concomitant]
     Active Substance: TERBINAFINE HYDROCHLORIDE
     Indication: PRODUCT USED FOR UNKNOWN INDICATION
     Dosage: UNK
     Route: 061
  4. CARDIZEM [Concomitant]
     Active Substance: DILTIAZEM HYDROCHLORIDE
     Indication: PRODUCT USED FOR UNKNOWN INDICATION
     Dosage: 120 MILLIGRAM, QD
     Route: 048
  5. COMPAZINE [Concomitant]
     Active Substance: PROCHLORPERAZINE MALEATE
     Indication: NAUSEA
     Dosage: 10 MILLIGRAM, Q6H
     Route: 048
  6. BGB-3111 [Suspect]
     Active Substance: ZANUBRUTINIB
     Indication: CHRONIC LYMPHOCYTIC LEUKAEMIA
     Dosage: 160 MG, BID
     Route: 048
     Dates: start: 20170324, end: 20170623
  7. NITROSTAT [Concomitant]
     Active Substance: NITROGLYCERIN
     Indication: CHEST PAIN
     Dosage: 0.4 MILLIGRAM
     Route: 060
  8. BGB-3111 [Suspect]
     Active Substance: ZANUBRUTINIB
     Dosage: 160 MG, BID
     Route: 048
     Dates: start: 20170706, end: 20170711
  9. ASPIRIN. [Concomitant]
     Active Substance: ASPIRIN
     Indication: PRODUCT USED FOR UNKNOWN INDICATION
     Dosage: 325 MILLIGRAM, QD
     Route: 048
  10. VIREAD [Concomitant]
     Active Substance: TENOFOVIR DISOPROXIL FUMARATE
     Indication: PRODUCT USED FOR UNKNOWN INDICATION
     Dosage: 300 DOSAGE FORM
     Route: 048
  11. COMPAZINE [Concomitant]
     Active Substance: PROCHLORPERAZINE MALEATE
     Indication: VOMITING

REACTIONS (1)
  - Hepatitis viral [Recovered/Resolved]

NARRATIVE: CASE EVENT DATE: 20170620
